FAERS Safety Report 8185939-6 (Version None)
Quarter: 2012Q1

REPORT INFORMATION
  Report Type: 
  Country: None (occurrence: None)
  Receive Date: 20120305
  Receipt Date: 20120229
  Transmission Date: 20120608
  Serious: Yes (Life-Threatening)
  Sender: FDA-Public Use
  Company Number: US-ASTRAZENECA-2012SE14011

PATIENT
  Age: 40 Year
  Sex: Male

DRUGS (1)
  1. TOPROL-XL [Suspect]
     Route: 048

REACTIONS (1)
  - APPARENT DEATH [None]
